FAERS Safety Report 4423265-9 (Version None)
Quarter: 2004Q3

REPORT INFORMATION
  Report Type: 
  Country: None (occurrence: None)
  Receive Date: 20040810
  Receipt Date: 20040810
  Transmission Date: 20050211
  Serious: No
  Sender: FDA-Public Use
  Company Number: None

PATIENT
  Sex: Female
  Weight: 99.7913 kg

DRUGS (2)
  1. NIX [Suspect]
     Indication: LICE INFESTATION
     Dosage: USED 3 DIFFERENT TIMES
     Dates: start: 20040625, end: 20040704
  2. PERMETHRIN [Suspect]

REACTIONS (5)
  - DRUG EFFECT DECREASED [None]
  - DRY SKIN [None]
  - LYMPHADENOPATHY [None]
  - SKIN ULCER [None]
  - SWELLING [None]
